FAERS Safety Report 4625427-4 (Version None)
Quarter: 2005Q2

REPORT INFORMATION
  Report Type: 
  Country: None (occurrence: None)
  Receive Date: 20050401
  Receipt Date: 20050323
  Transmission Date: 20051028
  Serious: Yes (Other)
  Sender: FDA-Public Use
  Company Number: CA-NOVOPROD-243245

PATIENT

DRUGS (1)
  1. NIASTASE [Suspect]
     Indication: ILL-DEFINED DISORDER

REACTIONS (1)
  - HYDROCEPHALUS [None]
